FAERS Safety Report 7764700-8 (Version None)
Quarter: 2011Q3

REPORT INFORMATION
  Report Type: 
  Country: None (occurrence: None)
  Receive Date: 20110921
  Receipt Date: 20110919
  Transmission Date: 20111222
  Serious: Yes (Death, Hospitalization, Other)
  Sender: FDA-Public Use
  Company Number: IL-UCBSA-009046

PATIENT
  Sex: Male
  Weight: 84 kg

DRUGS (15)
  1. CERTOLIZUMAB PEGOL [Suspect]
     Route: 058
     Dates: start: 20071217, end: 20100317
  2. FOLIC ACID [Concomitant]
     Indication: RHEUMATOID ARTHRITIS
     Route: 048
     Dates: start: 19980419
  3. CERTOLIZUMAB PEGOL [Suspect]
     Route: 058
     Dates: start: 20100414
  4. METHOTREXATE [Concomitant]
     Indication: RHEUMATOID ARTHRITIS
     Route: 030
     Dates: start: 20080314, end: 20100317
  5. AMITRIPTYLINE HCL [Concomitant]
     Indication: RHEUMATOID ARTHRITIS
     Route: 048
     Dates: start: 19970408
  6. ATORVASTATIN [Concomitant]
     Indication: HYPERLIPIDAEMIA
     Route: 048
     Dates: start: 20080601
  7. CERTOLIZUMAB PEGOL [Suspect]
     Route: 058
     Dates: start: 20060823, end: 20071128
  8. PREDNISONE [Concomitant]
     Indication: RHEUMATOID ARTHRITIS
     Route: 048
     Dates: start: 19960613
  9. DOXAZOSIN MESYLATE [Concomitant]
     Indication: HYPERTENSION
     Route: 048
  10. ASPIRIN [Concomitant]
     Indication: MYOCARDIAL ISCHAEMIA
     Route: 048
     Dates: start: 19970101
  11. BISOPROLOL FUMARATE [Concomitant]
     Indication: MYOCARDIAL ISCHAEMIA
     Route: 048
     Dates: start: 20080907
  12. CALCIUM CARBONATE [Concomitant]
     Indication: OSTEOPOROSIS
     Route: 048
     Dates: start: 19980419
  13. CERTOLIZUMAB PEGOL [Suspect]
     Indication: RHEUMATOID ARTHRITIS
     Dosage: CDP870-027
     Route: 058
     Dates: start: 20050824, end: 20060809
  14. RAMIPRIL [Concomitant]
     Indication: HYPERTENSION
     Route: 048
     Dates: start: 20090515
  15. AMLODIPINE [Concomitant]
     Indication: HYPERTENSION
     Route: 048
     Dates: start: 20100216

REACTIONS (9)
  - NOSOCOMIAL INFECTION [None]
  - MYOCARDIAL ISCHAEMIA [None]
  - OPEN FRACTURE [None]
  - FLANK PAIN [None]
  - PNEUMONIA [None]
  - LOBAR PNEUMONIA [None]
  - GASTROENTERITIS [None]
  - LOWER LIMB FRACTURE [None]
  - SEPSIS [None]
